FAERS Safety Report 25725487 (Version 1)
Quarter: 2025Q3

REPORT INFORMATION
  Report Type: Spontaneous
  Country: EU (occurrence: EU)
  Receive Date: 20250826
  Receipt Date: 20250826
  Transmission Date: 20251020
  Serious: Yes (Other)
  Sender: SAMSUNG BIOEPIS
  Company Number: None

PATIENT
  Age: 14 Year
  Sex: Female

DRUGS (2)
  1. INFLIXIMAB [Suspect]
     Active Substance: INFLIXIMAB
     Indication: Crohn^s disease
     Dosage: 10 MG/KG EVERY 4 WEEKS.
     Route: 042
     Dates: start: 202501, end: 20250408
  2. INFLIXIMAB [Suspect]
     Active Substance: INFLIXIMAB
     Dosage: A CHANGE TO 12.5 MG/KG EVERY 4 WEEKS (INCREASE TO 12.5 MG/KG FROM 09-APR-2025)
     Route: 042
     Dates: start: 20250409

REACTIONS (1)
  - Blood immunoglobulin G increased [Not Recovered/Not Resolved]

NARRATIVE: CASE EVENT DATE: 20250303
